FAERS Safety Report 23784654 (Version 5)
Quarter: 2025Q2

REPORT INFORMATION
  Report Type: Report from Study
  Country: US (occurrence: US)
  Receive Date: 20240425
  Receipt Date: 20250625
  Transmission Date: 20250717
  Serious: No
  Sender: BAUSCH AND LOMB
  Company Number: US-BAUSCH-BL-2024-006477

PATIENT
  Age: 47 Year
  Sex: Female

DRUGS (2)
  1. XIFAXAN [Suspect]
     Active Substance: RIFAXIMIN
     Indication: Product used for unknown indication
     Dosage: TAKING SINCE LAST 7 YEARS
     Route: 048
     Dates: start: 2017, end: 2024
  2. XIFAXAN [Suspect]
     Active Substance: RIFAXIMIN
     Route: 048
     Dates: start: 2024

REACTIONS (4)
  - Therapy interrupted [Unknown]
  - Insurance issue [Unknown]
  - Inability to afford medication [Unknown]
  - No adverse event [Unknown]
